FAERS Safety Report 23880223 (Version 1)
Quarter: 2024Q2

REPORT INFORMATION
  Report Type: Report from Study
  Country: US (occurrence: US)
  Receive Date: 20240521
  Receipt Date: 20240521
  Transmission Date: 20240716
  Serious: Yes (Other)
  Sender: FDA-Public Use
  Company Number: US-ABBVIE-5761956

PATIENT
  Age: 49 Year
  Sex: Female

DRUGS (3)
  1. HUMIRA [Suspect]
     Active Substance: ADALIMUMAB
     Indication: Crohn^s disease
     Dosage: FORM STRENGTH: 40 MILLIGRAM?CITRATE FREE
     Route: 058
     Dates: start: 20230501
  2. HUMIRA [Suspect]
     Active Substance: ADALIMUMAB
     Dosage: FORM STRENGTH: 40 MILLIGRAM?CITRATE FREE
     Route: 058
     Dates: start: 20240501
  3. ELIQUIS [Concomitant]
     Active Substance: APIXABAN
     Indication: Thrombosis

REACTIONS (6)
  - Catheter site fibrosis [Unknown]
  - Dyspnoea [Not Recovered/Not Resolved]
  - Renal vein compression [Not Recovered/Not Resolved]
  - Iron deficiency [Recovering/Resolving]
  - Pyoderma gangrenosum [Recovering/Resolving]
  - May-Thurner syndrome [Recovered/Resolved with Sequelae]

NARRATIVE: CASE EVENT DATE: 20240101
